FAERS Safety Report 7573704-X (Version None)
Quarter: 2011Q2

REPORT INFORMATION
  Report Type: 
  Country: None (occurrence: None)
  Receive Date: 20110627
  Receipt Date: 20110620
  Transmission Date: 20111010
  Serious: Yes (Hospitalization, Other)
  Sender: FDA-Public Use
  Company Number: US-ROCHE-779229

PATIENT
  Age: 52 Year
  Sex: Female
  Weight: 61.2 kg

DRUGS (11)
  1. SOMA [Suspect]
     Route: 065
  2. PREVACID [Concomitant]
     Route: 048
     Dates: start: 20110302
  3. OXYCONTIN [Suspect]
     Indication: PAIN
     Route: 048
     Dates: start: 20090624
  4. ZOFRAN [Concomitant]
     Indication: NAUSEA
     Dosage: FREQUENCY: AS NEEDED
     Route: 048
     Dates: start: 20110216
  5. COLACE [Concomitant]
     Indication: CONSTIPATION
     Dosage: FREQUENCY: PRN
     Route: 048
     Dates: start: 20101221
  6. OXYCODONE HCL [Concomitant]
     Indication: PAIN
     Dosage: FREQUENCY: AS NEEDED
     Route: 048
     Dates: start: 20090624
  7. NIFEREX FORTE [Concomitant]
     Indication: SUPPLEMENTATION THERAPY
     Dosage: FREQUENCY: DAILY
     Route: 048
     Dates: start: 20100201
  8. SEROQUEL [Suspect]
     Indication: INSOMNIA
     Dosage: FREQUENCY: QHS
     Route: 048
     Dates: start: 20060201
  9. TRAZODONE HCL [Suspect]
     Indication: INSOMNIA
     Dosage: FREQUENCY: QHS
     Route: 048
     Dates: start: 20110329, end: 20110417
  10. LYRICA [Concomitant]
     Indication: PAIN
     Route: 048
     Dates: start: 20101221, end: 20110417
  11. KLONOPIN [Suspect]
     Indication: INSOMNIA
     Dosage: FREQUENCY: QHS EVERY NIGHT
     Route: 048
     Dates: start: 20060220

REACTIONS (10)
  - PNEUMONIA [None]
  - LOSS OF CONSCIOUSNESS [None]
  - HYPOXIA [None]
  - ILEUS [None]
  - OVERDOSE [None]
  - ANAEMIA [None]
  - MENTAL STATUS CHANGES [None]
  - SPINAL OPERATION [None]
  - PAIN [None]
  - PULMONARY MASS [None]
